FAERS Safety Report 4364517-0 (Version None)
Quarter: 2004Q2

REPORT INFORMATION
  Report Type: 
  Country: None (occurrence: None)
  Receive Date: 20040521
  Receipt Date: 20040512
  Transmission Date: 20050107
  Serious: Yes (Death)
  Sender: FDA-Public Use
  Company Number: US-JNJFOC-20040502735

PATIENT
  Sex: Male

DRUGS (1)
  1. DURAGESIC [Suspect]
     Indication: PAIN

REACTIONS (1)
  - OVERDOSE [None]
